FAERS Safety Report 11021230 (Version 2)
Quarter: 2015Q2

REPORT INFORMATION
  Report Type: Spontaneous
  Country: CA (occurrence: CA)
  Receive Date: 20150413
  Receipt Date: 20150624
  Transmission Date: 20150821
  Serious: Yes (Life-Threatening)
  Sender: FDA-Public Use
  Company Number: CA-BEH-2015050244

PATIENT
  Age: 21 Year
  Sex: Female

DRUGS (6)
  1. PRIVIGEN [Suspect]
     Active Substance: HUMAN IMMUNOGLOBULIN G
     Route: 042
     Dates: start: 20150316
  2. PRIVIGEN [Suspect]
     Active Substance: HUMAN IMMUNOGLOBULIN G
     Route: 042
     Dates: start: 20150317
  3. PRIVIGEN [Suspect]
     Active Substance: HUMAN IMMUNOGLOBULIN G
     Route: 042
     Dates: start: 20150315
  4. PRIVIGEN [Suspect]
     Active Substance: HUMAN IMMUNOGLOBULIN G
     Route: 042
     Dates: start: 20150317
  5. PRIVIGEN [Suspect]
     Active Substance: HUMAN IMMUNOGLOBULIN G
     Indication: GUILLAIN-BARRE SYNDROME
     Route: 042
     Dates: start: 20150315
  6. PRIVIGEN [Suspect]
     Active Substance: HUMAN IMMUNOGLOBULIN G
     Route: 042
     Dates: start: 20150316

REACTIONS (7)
  - Haemolysis [Unknown]
  - Haemoglobin decreased [Recovered/Resolved]
  - Anaemia [Unknown]
  - Reticulocyte count [Unknown]
  - Food interaction [Unknown]
  - Red blood cell spherocytes present [Unknown]
  - Coombs direct test positive [Unknown]

NARRATIVE: CASE EVENT DATE: 201503
